FAERS Safety Report 14939182 (Version 1)
Quarter: 2018Q2

REPORT INFORMATION
  Report Type: Spontaneous
  Country: BR (occurrence: BR)
  Receive Date: 20180525
  Receipt Date: 20180525
  Transmission Date: 20180711
  Serious: Yes (Other)
  Sender: FDA-Public Use
  Company Number: BR-ABBVIE-18P-020-2333004-00

PATIENT
  Sex: Female

DRUGS (2)
  1. DEPAKOTE ER [Suspect]
     Active Substance: DIVALPROEX SODIUM
     Indication: PRODUCT USED FOR UNKNOWN INDICATION
     Dosage: DAILY DOSE: 750 MG; 1 TABLET OF 250 MG IN MORNING AND 2 TABLETS OF 500 MG AT NIGHT
     Route: 065
     Dates: start: 2007, end: 2017
  2. DIVALCON ER [Suspect]
     Active Substance: DIVALPROEX SODIUM
     Indication: PRODUCT USED FOR UNKNOWN INDICATION
     Dosage: DAILY DOSE: 750 MG; 1 TABLET OF 250 MG IN MORNING AND 2 TABLETS OF 500 MG AT NIGHT
     Route: 065
     Dates: start: 2017

REACTIONS (5)
  - Gallbladder disorder [Unknown]
  - Inappropriate schedule of drug administration [Not Recovered/Not Resolved]
  - Medication residue present [Unknown]
  - Diarrhoea [Unknown]
  - Inappropriate schedule of drug administration [Recovered/Resolved]

NARRATIVE: CASE EVENT DATE: 2017
